FAERS Safety Report 4524804-X (Version None)
Quarter: 2004Q4

REPORT INFORMATION
  Report Type: 
  Country: None (occurrence: None)
  Receive Date: 20041208
  Receipt Date: 20041202
  Transmission Date: 20050328
  Serious: Yes (Other)
  Sender: FDA-Public Use
  Company Number: 163-20785-04120053

PATIENT
  Sex: 0

DRUGS (1)
  1. THALOMID [Suspect]
     Dosage: ORAL
     Route: 048

REACTIONS (2)
  - CONDITION AGGRAVATED [None]
  - CORONARY ARTERY DISEASE [None]
